FAERS Safety Report 8250545-1 (Version None)
Quarter: 2012Q2

REPORT INFORMATION
  Report Type: 
  Country: None (occurrence: None)
  Receive Date: 20120402
  Receipt Date: 20120329
  Transmission Date: 20120825
  Serious: Yes (Death)
  Sender: FDA-Public Use
  Company Number: PT-PFIZER INC-2012051098

PATIENT
  Age: 43 Year
  Sex: Female

DRUGS (1)
  1. FLUCONAZOLE [Suspect]
     Indication: ZYGOMYCOSIS

REACTIONS (3)
  - MULTI-ORGAN FAILURE [None]
  - BRONCHOALVEOLAR LAVAGE ABNORMAL [None]
  - MULTI-ORGAN DISORDER [None]
